FAERS Safety Report 5912993-1 (Version None)
Quarter: 2008Q4

REPORT INFORMATION
  Report Type: 
  Country: None (occurrence: None)
  Receive Date: 20081008
  Receipt Date: 20080926
  Transmission Date: 20090506
  Serious: Yes (Hospitalization, Other)
  Sender: FDA-Public Use
  Company Number: ZA-PFIZER INC-2008081100

PATIENT
  Age: 40 Year
  Sex: Female

DRUGS (4)
  1. SOLU-MEDROL [Suspect]
     Indication: SYSTEMIC LUPUS ERYTHEMATOSUS
  2. PREDNISONE TAB [Concomitant]
  3. MAXOLON [Concomitant]
  4. PHARMAPRESS [Concomitant]

REACTIONS (2)
  - ANAPHYLACTIC REACTION [None]
  - SWOLLEN TONGUE [None]
